FAERS Safety Report 8326078 (Version 2)
Quarter: 2019Q3

REPORT INFORMATION
  Report Type: Report from Study
  Country: JP (occurrence: JP)
  Receive Date: 20120106
  Receipt Date: 20190712
  Transmission Date: 20191005
  Serious: Yes (Death, Hospitalization, Other)
  Sender: FDA-Public Use
  Company Number: PHHY2011JP66740

PATIENT
  Age: 58 Year
  Sex: Male
  Weight: 53 kg

DRUGS (2)
  1. AFINITOR [Suspect]
     Active Substance: EVEROLIMUS
     Indication: METASTATIC RENAL CELL CARCINOMA
     Dosage: 10 MG, QD
     Route: 048
     Dates: start: 20110428, end: 20110920
  2. SUNITINIB MALATE. [Concomitant]
     Active Substance: SUNITINIB MALATE
     Indication: METASTATIC RENAL CELL CARCINOMA
     Dosage: 50 MG, UNK
     Route: 048
     Dates: start: 20090916, end: 20110301

REACTIONS (9)
  - Haemoglobin decreased [Unknown]
  - Lung abscess [Fatal]
  - Lung abscess [Recovered/Resolved]
  - Pleural effusion [Fatal]
  - C-reactive protein increased [Fatal]
  - Aspiration pleural cavity [Fatal]
  - Respiratory disorder [Unknown]
  - Stomatitis [Recovered/Resolved]
  - Blood alkaline phosphatase increased [Unknown]

NARRATIVE: CASE EVENT DATE: 20110523
